FAERS Safety Report 8240956-2 (Version None)
Quarter: 2012Q1

REPORT INFORMATION
  Report Type: 
  Country: None (occurrence: None)
  Receive Date: 20120328
  Receipt Date: 20120314
  Transmission Date: 20120608
  Serious: Yes (Hospitalization)
  Sender: FDA-Public Use
  Company Number: DE-MYLANLABS-2012S1005956

PATIENT
  Age: 70 Year
  Sex: Female

DRUGS (7)
  1. PHENPROCOUMON [Suspect]
     Indication: AORTIC VALVE REPLACEMENT
     Route: 065
  2. TERBINAFINE HCL [Suspect]
     Route: 065
  3. ASPIRIN [Concomitant]
     Route: 065
  4. LOSARTAN POTASSIUM [Suspect]
     Indication: AORTIC VALVE REPLACEMENT
     Route: 065
  5. BISOPROLOL FUMARATE [Suspect]
     Route: 065
  6. AMIODARONE HCL [Suspect]
     Indication: AORTIC VALVE REPLACEMENT
     Route: 065
  7. TORSEMIDE [Suspect]
     Route: 065

REACTIONS (1)
  - CUTANEOUS LUPUS ERYTHEMATOSUS [None]
